FAERS Safety Report 4485834-X (Version None)
Quarter: 2004Q3

REPORT INFORMATION
  Report Type: 
  Country: None (occurrence: None)
  Receive Date: 20040921
  Receipt Date: 20031002
  Transmission Date: 20050211
  Serious: Yes (Death)
  Sender: FDA-Public Use
  Company Number: 163-20785-03100150

PATIENT
  Age: 61 Year
  Sex: Male

DRUGS (11)
  1. THALOMID [Suspect]
     Indication: MULTIPLE MYELOMA
     Dosage: 400 MG, QD, ORAL
     Route: 048
     Dates: start: 20010727, end: 20010913
  2. DEXAMETHASONE [Suspect]
     Indication: MULTIPLE MYELOMA
     Dosage: X4 DAYS Q 28 DAYS, ORAL
     Route: 048
     Dates: start: 20010901
  3. CYTOXAN [Suspect]
     Indication: MULTIPLE MYELOMA
     Dates: start: 20010901
  4. CYTOXAN [Suspect]
     Indication: MULTIPLE MYELOMA
     Dates: start: 20020701
  5. ETOPOSIDE [Suspect]
     Indication: MULTIPLE MYELOMA
     Dosage: INTRAVENOUS
     Route: 042
     Dates: start: 20010901
  6. ETOPOSIDE [Suspect]
     Indication: MULTIPLE MYELOMA
     Dosage: INTRAVENOUS
     Route: 042
     Dates: start: 20020201
  7. CISPLATIN [Suspect]
     Indication: MULTIPLE MYELOMA
     Dates: start: 20010901
  8. CISPLATIN [Suspect]
     Indication: MULTIPLE MYELOMA
     Dates: start: 20020701
  9. ADRIAMYCIN PFS [Suspect]
     Indication: MULTIPLE MYELOMA
     Dates: start: 20010701
  10. ADRIAMYCIN PFS [Suspect]
     Indication: MULTIPLE MYELOMA
     Dates: start: 20011001
  11. MELPHALAN (MELPHALAN) (INJECTION) [Suspect]
     Indication: MULTIPLE MYELOMA
     Dosage: 200 MG/M2
     Dates: start: 20020201

REACTIONS (2)
  - DEATH [None]
  - DISEASE PROGRESSION [None]
